FAERS Safety Report 7243755-3 (Version None)
Quarter: 2011Q1

REPORT INFORMATION
  Report Type: 
  Country: None (occurrence: None)
  Receive Date: 20110125
  Receipt Date: 20110121
  Transmission Date: 20110831
  Serious: No
  Sender: FDA-Public Use
  Company Number: US-PFIZER INC-2011015619

PATIENT
  Sex: Female
  Weight: 80.726 kg

DRUGS (2)
  1. GUAIFENESIN W/DEXTROMETHORPHAN [Concomitant]
     Indication: NASOPHARYNGITIS
     Dosage: UNK
     Dates: end: 20110121
  2. ALAVERT [Suspect]
     Indication: HYPERSENSITIVITY
     Dosage: 10 MG, DAILY
     Route: 048
     Dates: start: 20110117, end: 20110118

REACTIONS (4)
  - MIGRAINE [None]
  - DIARRHOEA [None]
  - MALAISE [None]
  - VOMITING [None]
